FAERS Safety Report 15602611 (Version 1)
Quarter: 2018Q4

REPORT INFORMATION
  Report Type: Spontaneous
  Country: US (occurrence: US)
  Receive Date: 20181109
  Receipt Date: 20181109
  Transmission Date: 20190205
  Serious: Yes (Hospitalization)
  Sender: FDA-Public Use
  Company Number: None

PATIENT
  Age: 42 Year
  Sex: Male
  Weight: 160 kg

DRUGS (1)
  1. LISINOPRIL/HCTZ [Suspect]
     Active Substance: HYDROCHLOROTHIAZIDE\LISINOPRIL
     Indication: HYPERTENSION
     Route: 048

REACTIONS (2)
  - Pharyngeal oedema [None]
  - Swelling face [None]

NARRATIVE: CASE EVENT DATE: 20181029
